FAERS Safety Report 24728859 (Version 1)
Quarter: 2024Q4

REPORT INFORMATION
  Report Type: Spontaneous
  Country: US (occurrence: US)
  Receive Date: 20241212
  Receipt Date: 20241212
  Transmission Date: 20250114
  Serious: No
  Sender: AUROBINDO
  Company Number: US-AUROBINDO-AUR-APL-2024-027895

PATIENT
  Sex: Male

DRUGS (1)
  1. FINASTERIDE [Suspect]
     Active Substance: FINASTERIDE
     Indication: Benign prostatic hyperplasia
     Dosage: UNK
     Route: 048

REACTIONS (6)
  - Alopecia [Unknown]
  - Ejaculation disorder [Unknown]
  - Drug ineffective [Unknown]
  - Product substitution issue [Unknown]
  - Product identification number issue [Unknown]
  - Product lot number issue [Unknown]
